FAERS Safety Report 6750022-0 (Version None)
Quarter: 2010Q2

REPORT INFORMATION
  Report Type: 
  Country: None (occurrence: None)
  Receive Date: 20100601
  Receipt Date: 20100527
  Transmission Date: 20101027
  Serious: Yes (Hospitalization, Other)
  Sender: FDA-Public Use
  Company Number: GXKR2010DE05851

PATIENT
  Age: 79 Year
  Sex: Male
  Weight: 56.2 kg

DRUGS (20)
  1. ASPIRIN [Suspect]
     Dosage: 100 MG, QD
     Route: 048
     Dates: end: 20070724
  2. MARCUMAR [Interacting]
     Dosage: UNK
     Route: 048
     Dates: end: 20070724
  3. PANTOPRAZOLE SODIUM [Concomitant]
     Route: 042
  4. MCP ^HEXAL^ [Concomitant]
     Route: 048
  5. KONAKION [Concomitant]
     Dosage: 1 DF, QD
     Route: 065
     Dates: start: 20070725, end: 20070726
  6. DIGIMERCK [Concomitant]
     Route: 048
  7. TORSEMIDE [Concomitant]
     Dosage: 4 DF, QD
     Route: 048
     Dates: end: 20070724
  8. TORSEMIDE [Concomitant]
     Dosage: 0.5 DF, QD
     Dates: start: 20070725
  9. METOPROLOL TARTRATE [Concomitant]
     Route: 048
  10. CANDESARTAN CILEXETIL [Concomitant]
     Dosage: 1-0-0.5
     Route: 048
     Dates: end: 20070724
  11. CANDESARTAN CILEXETIL [Concomitant]
     Dosage: 0.5-0-2
     Dates: start: 20070725
  12. SIMVASTATIN [Concomitant]
     Route: 048
  13. UNACID PD ORAL [Concomitant]
     Route: 048
  14. FOSAMAX [Concomitant]
     Dosage: 1 DF, QW
     Route: 048
     Dates: end: 20070724
  15. FOSAMAX [Concomitant]
     Dosage: 1 DF, QW
     Route: 048
     Dates: start: 20070808
  16. ASPIRIN [Concomitant]
     Route: 048
  17. AMARA ^KOCH^ [Concomitant]
     Route: 048
  18. PARACODIN DROPS [Concomitant]
     Route: 048
  19. PULVIS STOMACH C BELLADONNA [Concomitant]
  20. SCLERON [Concomitant]

REACTIONS (3)
  - HAEMOGLOBIN DECREASED [None]
  - HAEMOPTYSIS [None]
  - PULMONARY HAEMORRHAGE [None]
